FAERS Safety Report 6067431-8 (Version None)
Quarter: 2009Q1

REPORT INFORMATION
  Report Type: 
  Country: None (occurrence: None)
  Receive Date: 20090204
  Receipt Date: 20090204
  Transmission Date: 20090719
  Serious: No
  Sender: FDA-Public Use
  Company Number: None

PATIENT
  Age: 33 Year
  Sex: Male

DRUGS (1)
  1. VARENICLINE 1MG [Suspect]
     Indication: DEPRESSION
     Dosage: 1MG TWICE A DAY PO
     Route: 048
     Dates: start: 20071026, end: 20090203

REACTIONS (5)
  - ANXIETY [None]
  - FEELING GUILTY [None]
  - FEELING OF DESPAIR [None]
  - OBSESSIVE THOUGHTS [None]
  - WRONG DRUG ADMINISTERED [None]
